FAERS Safety Report 7457566-7 (Version None)
Quarter: 2011Q2

REPORT INFORMATION
  Report Type: 
  Country: None (occurrence: None)
  Receive Date: 20110504
  Receipt Date: 20110429
  Transmission Date: 20111010
  Serious: Yes (Hospitalization)
  Sender: FDA-Public Use
  Company Number: PL-ABBOTT-11P-129-0722614-00

PATIENT
  Age: 81 Year
  Sex: Male

DRUGS (7)
  1. TAMSULOSIN HCL [Concomitant]
     Indication: PROSTATE CANCER
  2. CYPROTERONE [Concomitant]
     Indication: PROSTATE CANCER
  3. LUCRIN DEPOT INJECTION [Suspect]
     Indication: PROSTATE CANCER
     Route: 030
  4. FLUTAMIDE [Concomitant]
     Indication: PROSTATE CANCER
  5. LUCRIN DEPOT INJECTION [Suspect]
  6. FINASTERIDE [Concomitant]
     Indication: PROSTATE CANCER
  7. ZOLADEX [Suspect]
     Indication: PROSTATE CANCER

REACTIONS (1)
  - PEMPHIGOID [None]
